FAERS Safety Report 10814063 (Version 1)
Quarter: 2015Q1

REPORT INFORMATION
  Report Type: Report from Study
  Country: US (occurrence: US)
  Receive Date: 20150218
  Receipt Date: 20150218
  Transmission Date: 20150721
  Serious: No
  Sender: FDA-Public Use
  Company Number: US-ABBVIE-14K-163-1280782-00

PATIENT
  Age: 23 Year
  Sex: Male
  Weight: 111.68 kg

DRUGS (4)
  1. HUMIRA [Suspect]
     Active Substance: ADALIMUMAB
     Indication: CROHN^S DISEASE
     Dates: start: 20140319, end: 20140319
  2. HUMIRA [Suspect]
     Active Substance: ADALIMUMAB
     Dates: start: 20140402, end: 20140402
  3. HUMIRA [Suspect]
     Active Substance: ADALIMUMAB
     Dates: start: 20140905
  4. HUMIRA [Suspect]
     Active Substance: ADALIMUMAB
     Dates: start: 20140416, end: 20140822

REACTIONS (2)
  - Crohn^s disease [Recovering/Resolving]
  - Drug ineffective [Not Recovered/Not Resolved]

NARRATIVE: CASE EVENT DATE: 201407
